FAERS Safety Report 12574482 (Version 2)
Quarter: 2016Q3

REPORT INFORMATION
  Report Type: Spontaneous
  Country: US (occurrence: US)
  Receive Date: 20160720
  Receipt Date: 20160823
  Transmission Date: 20161109
  Serious: No
  Sender: FDA-Public Use
  Company Number: US-GLAXOSMITHKLINE-US2016097523

PATIENT
  Age: 62 Year
  Sex: Male

DRUGS (2)
  1. BREO ELLIPTA [Suspect]
     Active Substance: FLUTICASONE FUROATE\VILANTEROL TRIFENATATE
     Dosage: UNK
  2. BREO ELLIPTA [Suspect]
     Active Substance: FLUTICASONE FUROATE\VILANTEROL TRIFENATATE
     Indication: PRODUCT USED FOR UNKNOWN INDICATION
     Dosage: 100/25 MCG 1 PUFF(S), QD
     Dates: start: 201504

REACTIONS (5)
  - Nausea [Unknown]
  - Vomiting [Unknown]
  - Malaise [Unknown]
  - Foreign body [Unknown]
  - Product quality issue [Unknown]

NARRATIVE: CASE EVENT DATE: 201607
